FAERS Safety Report 10161183 (Version 8)
Quarter: 2019Q4

REPORT INFORMATION
  Report Type: Spontaneous
  Country: CA (occurrence: CA)
  Receive Date: 20140508
  Receipt Date: 20191226
  Transmission Date: 20200122
  Serious: Yes (Other)
  Sender: FDA-Public Use
  Company Number: CA-TAKEDA-2014TUS001149

PATIENT
  Age: 44 Year
  Sex: Female

DRUGS (14)
  1. ALLOPURINOL. [Suspect]
     Active Substance: ALLOPURINOL
     Indication: MYOPATHY
     Dosage: 100 MILLIGRAM, QD
     Route: 065
  2. AZATHIOPRINE. [Interacting]
     Active Substance: AZATHIOPRINE
     Indication: MYOPATHY
     Dosage: 125 MILLIGRAM, QD
     Route: 065
  3. IMMUNE GLOBULIN [Concomitant]
     Indication: MYOPATHY
     Dosage: UNK
     Route: 042
  4. ULORIC [Suspect]
     Active Substance: FEBUXOSTAT
     Indication: MYOPATHY
     Dosage: 40 MILLIGRAM, QD
     Route: 048
  5. METHOTREXATE. [Suspect]
     Active Substance: METHOTREXATE
     Indication: MYOPATHY
     Dosage: UNK
     Route: 058
  6. ALLOPURINOL. [Suspect]
     Active Substance: ALLOPURINOL
     Dosage: 400 MILLIGRAM
     Route: 065
  7. ALLOPURINOL. [Suspect]
     Active Substance: ALLOPURINOL
     Indication: IMMUNE-MEDIATED MYOSITIS
     Dosage: 400 MILLIGRAM, QD
     Route: 065
  8. AZATHIOPRINE. [Interacting]
     Active Substance: AZATHIOPRINE
     Dosage: 250 MILLIGRAM, QD
     Route: 065
  9. AZATHIOPRINE. [Interacting]
     Active Substance: AZATHIOPRINE
     Dosage: 50 MILLIGRAM, QD
     Route: 065
  10. RITUXAN [Suspect]
     Active Substance: RITUXIMAB
     Indication: PRODUCT USED FOR UNKNOWN INDICATION
     Dosage: UNK
     Route: 065
  11. ULORIC [Interacting]
     Active Substance: FEBUXOSTAT
     Indication: IMMUNE-MEDIATED MYOSITIS
     Dosage: 40 MILLIGRAM
     Route: 065
  12. AZATHIOPRINE. [Interacting]
     Active Substance: AZATHIOPRINE
     Indication: IMMUNE-MEDIATED MYOSITIS
     Dosage: 150 MILLIGRAM, QD
     Route: 065
  13. AZATHIOPRINE. [Interacting]
     Active Substance: AZATHIOPRINE
     Dosage: 25 MILLIGRAM, QD
     Route: 065
  14. MYCOPHENOLATE MOFETIL. [Suspect]
     Active Substance: MYCOPHENOLATE MOFETIL
     Indication: PRODUCT USED FOR UNKNOWN INDICATION
     Dosage: UNK
     Route: 058

REACTIONS (9)
  - Pyrexia [Recovering/Resolving]
  - Drug ineffective [Recovering/Resolving]
  - Off label use [Unknown]
  - Myopathy [Recovering/Resolving]
  - Eosinophilia [Recovering/Resolving]
  - Drug interaction [Recovering/Resolving]
  - Hepatic mass [Recovering/Resolving]
  - Product use in unapproved indication [Unknown]
  - Drug reaction with eosinophilia and systemic symptoms [Recovering/Resolving]
